FAERS Safety Report 6498008-8 (Version None)
Quarter: 2009Q4

REPORT INFORMATION
  Report Type: 
  Country: None (occurrence: None)
  Receive Date: 20091215
  Receipt Date: 20091203
  Transmission Date: 20100525
  Serious: No
  Sender: FDA-Public Use
  Company Number: PHHY2009GB51651

PATIENT
  Sex: Female

DRUGS (3)
  1. GLEEVEC [Suspect]
  2. TASIGNA [Suspect]
  3. DASATINIB [Suspect]
     Route: 065

REACTIONS (1)
  - DRUG INEFFECTIVE [None]
